FAERS Safety Report 22200527 (Version 2)
Quarter: 2023Q2

REPORT INFORMATION
  Report Type: Spontaneous
  Country: AR (occurrence: AR)
  Receive Date: 20230412
  Receipt Date: 20230425
  Transmission Date: 20230721
  Serious: Yes (Other)
  Sender: FDA-Public Use
  Company Number: AR-SUN PHARMACEUTICAL INDUSTRIES LTD-2023R1-384305

PATIENT
  Age: 5 Year
  Sex: Female

DRUGS (1)
  1. METHIMAZOLE [Suspect]
     Active Substance: METHIMAZOLE
     Indication: Hyperthyroidism
     Dosage: 20 MILLIGRAM, DAILY
     Route: 065

REACTIONS (3)
  - Agranulocytosis [Recovering/Resolving]
  - Sepsis [Recovering/Resolving]
  - Neutropenia [Recovering/Resolving]
